FAERS Safety Report 5691283-9 (Version None)
Quarter: 2008Q2

REPORT INFORMATION
  Report Type: 
  Country: None (occurrence: None)
  Receive Date: 20080402
  Receipt Date: 20080324
  Transmission Date: 20081010
  Serious: Yes (Other)
  Sender: FDA-Public Use
  Company Number: US-JNJFOC-20080306029

PATIENT
  Sex: Male
  Weight: 215.46 kg

DRUGS (2)
  1. TOPAMAX [Suspect]
     Indication: MOOD ALTERED
  2. PAXIL [Concomitant]
     Indication: DEPRESSION

REACTIONS (3)
  - BRAIN OEDEMA [None]
  - CONVULSION [None]
  - MOOD SWINGS [None]
